FAERS Safety Report 6238759-3 (Version None)
Quarter: 2009Q2

REPORT INFORMATION
  Report Type: 
  Country: None (occurrence: None)
  Receive Date: 20090617
  Receipt Date: 20090617
  Transmission Date: 20091009
  Serious: No
  Sender: FDA-Public Use
  Company Number: None

PATIENT
  Sex: Male
  Weight: 78 kg

DRUGS (2)
  1. CYMBALTA [Suspect]
     Indication: DEPRESSION
     Dosage: 60MG ONCE DAILY PO
     Route: 048
     Dates: start: 20071115, end: 20090330
  2. CYMBALTA [Suspect]
     Dosage: 30MG ONCE DAILY PO
     Route: 048
     Dates: start: 20090401, end: 20090414

REACTIONS (9)
  - DIZZINESS [None]
  - EYE MOVEMENT DISORDER [None]
  - FEAR [None]
  - HEADACHE [None]
  - LOSS OF CONSCIOUSNESS [None]
  - MOTION SICKNESS [None]
  - PARAESTHESIA [None]
  - TINNITUS [None]
  - WITHDRAWAL SYNDROME [None]
